FAERS Safety Report 9821548 (Version 1)
Quarter: 2014Q1

REPORT INFORMATION
  Report Type: Spontaneous
  Country: US (occurrence: None)
  Receive Date: 20140114
  Receipt Date: 20140114
  Transmission Date: 20141002
  Serious: Yes (Death)
  Sender: FDA-Public Use
  Company Number: 2014P1000157

PATIENT
  Age: 40 Year
  Sex: Male

DRUGS (3)
  1. TOPIRAMATE [Suspect]
     Indication: CONVULSION
  2. DIVALPROEX SODIUM [Concomitant]
  3. ROSIGLITAZONE + METFORMIN [Concomitant]

REACTIONS (15)
  - Unresponsive to stimuli [None]
  - Blood glucose increased [None]
  - Cardiac arrest [None]
  - Supraventricular tachycardia [None]
  - Ventricular extrasystoles [None]
  - Bundle branch block right [None]
  - Acute myocardial infarction [None]
  - Heat stroke [None]
  - Blood pressure diastolic decreased [None]
  - Blood pressure decreased [None]
  - Electrocardiogram T wave abnormal [None]
  - Myocardial infarction [None]
  - Blood pH decreased [None]
  - Oxygen saturation decreased [None]
  - Blood creatinine increased [None]
